FAERS Safety Report 7536426-7 (Version None)
Quarter: 2011Q2

REPORT INFORMATION
  Report Type: 
  Country: None (occurrence: None)
  Receive Date: 20110609
  Receipt Date: 20110530
  Transmission Date: 20111010
  Serious: Yes (Other)
  Sender: FDA-Public Use
  Company Number: JP-SANOFI-AVENTIS-2011SA024268

PATIENT
  Age: 47 Year
  Sex: Male

DRUGS (2)
  1. ALCOHOL [Suspect]
     Indication: ALCOHOL USE
     Route: 048
  2. ZOLPIDEM [Suspect]
     Route: 048

REACTIONS (2)
  - AMNESIA [None]
  - ROAD TRAFFIC ACCIDENT [None]
